FAERS Safety Report 7537493-7 (Version None)
Quarter: 2011Q2

REPORT INFORMATION
  Report Type: 
  Country: None (occurrence: None)
  Receive Date: 20110603
  Receipt Date: 20110518
  Transmission Date: 20111010
  Serious: Yes (Life-Threatening, Hospitalization, Other)
  Sender: FDA-Public Use
  Company Number: 2011MA006147

PATIENT
  Age: 29 Year
  Sex: Male

DRUGS (2)
  1. DIAZEPAM [Suspect]
     Indication: INSOMNIA
     Dosage: 75 MG, 1X/ PO
     Route: 048
  2. VALPROIC ACID [Suspect]
     Indication: INTENTIONAL OVERDOSE
     Dosage: 4 G, 1X, PO
     Route: 048

REACTIONS (7)
  - BRAIN HERNIATION [None]
  - RESPIRATORY DEPRESSION [None]
  - ENCEPHALOPATHY [None]
  - INTENTIONAL OVERDOSE [None]
  - BRAIN OEDEMA [None]
  - HYPERAMMONAEMIA [None]
  - CEREBRAL INFARCTION [None]
